FAERS Safety Report 24692855 (Version 1)
Quarter: 2024Q4

REPORT INFORMATION
  Report Type: Spontaneous
  Country: GB (occurrence: GB)
  Receive Date: 20241203
  Receipt Date: 20241203
  Transmission Date: 20250114
  Serious: Yes (Other)
  Sender: MYLAN
  Company Number: GB-MHRA-TPP33887931C7379339YC1732796937903

PATIENT
  Age: 59 Year
  Sex: Male
  Weight: 118 kg

DRUGS (8)
  1. TICAGRELOR [Suspect]
     Active Substance: TICAGRELOR
     Indication: Ill-defined disorder
     Dosage: 90 MILLIGRAM, BID (UNTIL 23/9/25)
     Route: 065
     Dates: start: 20240925
  2. LISINOPRIL [Concomitant]
     Active Substance: LISINOPRIL
     Indication: Ill-defined disorder
     Dosage: 1 DOSAGE FORM, QD (ONE TO BE TAKEN ONCE A DAY)
     Route: 065
     Dates: start: 20240909
  3. SILDENAFIL [Concomitant]
     Active Substance: SILDENAFIL
     Indication: Ill-defined disorder
     Dosage: USE AS DIRECTED
     Route: 065
     Dates: start: 20220406
  4. LERCANIDIPINE HYDROCHLORIDE [Concomitant]
     Active Substance: LERCANIDIPINE HYDROCHLORIDE
     Indication: Ill-defined disorder
     Dosage: 1 DOSAGE FORM, QD
     Route: 065
     Dates: start: 20240628
  5. AMLODIPINE [Concomitant]
     Active Substance: AMLODIPINE BESYLATE
     Indication: Ill-defined disorder
     Dosage: 1 DOSAGE FORM, QD
     Route: 065
     Dates: start: 20240913, end: 20240925
  6. ATORVASTATIN [Concomitant]
     Active Substance: ATORVASTATIN
     Indication: Ill-defined disorder
     Dosage: 1 DOSAGE FORM, PM (AT NIGHT, IF THIS IS THE FIRST YEAR)
     Route: 065
     Dates: start: 20240913
  7. ASPIRIN [Concomitant]
     Active Substance: ASPIRIN
     Indication: Ill-defined disorder
     Dosage: 1 DOSAGE FORM, AM (MORNING)
     Route: 065
     Dates: start: 20240925
  8. OMEPRAZOLE [Concomitant]
     Active Substance: OMEPRAZOLE
     Indication: Ill-defined disorder
     Dosage: 1 DOSAGE FORM, AM (EACH MORNING FOR 1 YEAR, ENDS)
     Route: 065
     Dates: start: 20240925

REACTIONS (3)
  - Cardiac flutter [Unknown]
  - Anxiety [Unknown]
  - Dyspnoea [Unknown]
